FAERS Safety Report 7244826-8 (Version None)
Quarter: 2011Q1

REPORT INFORMATION
  Report Type: 
  Country: None (occurrence: None)
  Receive Date: 20110126
  Receipt Date: 20110114
  Transmission Date: 20110831
  Serious: Yes (Hospitalization, Other)
  Sender: FDA-Public Use
  Company Number: DE-JNJFOC-20101109123

PATIENT
  Age: 60 Year
  Sex: Male
  Weight: 76 kg

DRUGS (14)
  1. SIMPONI [Suspect]
     Route: 058
  2. MTX [Concomitant]
  3. ETANERCEPT [Concomitant]
  4. CALCIUM SANDOZ [Concomitant]
  5. PANTOPRAZOLE [Suspect]
     Indication: PROPHYLAXIS AGAINST GASTROINTESTINAL ULCER
  6. DIOVAN [Concomitant]
  7. ADALIMUMAB [Concomitant]
  8. SIMPONI [Suspect]
     Route: 058
  9. FERRO SANOL [Concomitant]
  10. SIMPONI [Suspect]
     Route: 058
  11. SIMPONI [Suspect]
     Indication: PRODUCT USED FOR UNKNOWN INDICATION
     Route: 058
  12. SIMPONI [Suspect]
     Route: 058
  13. SIMPONI [Suspect]
     Route: 058
  14. PANTOPRAZOLE [Suspect]

REACTIONS (3)
  - DIARRHOEA [None]
  - PROCTITIS [None]
  - CLOSTRIDIUM DIFFICILE COLITIS [None]
